FAERS Safety Report 4647524-X (Version None)
Quarter: 2005Q2

REPORT INFORMATION
  Report Type: 
  Country: None (occurrence: None)
  Receive Date: 20050426
  Receipt Date: 20050411
  Transmission Date: 20051028
  Serious: Yes (Death)
  Sender: FDA-Public Use
  Company Number: MK200504-0137-1

PATIENT
  Age: 87 Year
  Sex: Female

DRUGS (4)
  1. ANAFRANIL [Suspect]
     Indication: ANOREXIA
     Dosage: 25 MG
     Dates: start: 20050331, end: 20050403
  2. ANAFRANIL [Suspect]
     Indication: DEPRESSION
     Dosage: 25 MG
     Dates: start: 20050331, end: 20050403
  3. GASTER [Concomitant]
  4. MAXIPIME [Concomitant]

REACTIONS (2)
  - MULTI-ORGAN FAILURE [None]
  - NEUROLEPTIC MALIGNANT SYNDROME [None]
